FAERS Safety Report 17099174 (Version 1)
Quarter: 2019Q4

REPORT INFORMATION
  Report Type: Spontaneous
  Country: US (occurrence: US)
  Receive Date: 20191130
  Receipt Date: 20191130
  Transmission Date: 20200122
  Serious: Yes (Other)
  Sender: FDA-Public Use
  Company Number: None

PATIENT
  Age: 54 Year
  Sex: Female

DRUGS (12)
  1. OMEPRAZOLE. [Concomitant]
     Active Substance: OMEPRAZOLE
  2. TEMAZEPAM. [Concomitant]
     Active Substance: TEMAZEPAM
  3. LITHIUM. [Concomitant]
     Active Substance: LITHIUM
  4. ADDERALL [Concomitant]
     Active Substance: AMPHETAMINE ASPARTATE\AMPHETAMINE SULFATE\DEXTROAMPHETAMINE SACCHARATE\DEXTROAMPHETAMINE SULFATE
  5. PRAMIPEXOLE. [Concomitant]
     Active Substance: PRAMIPEXOLE
  6. CURCUMIN [Concomitant]
     Active Substance: CURCUMIN
  7. LATUDA [Suspect]
     Active Substance: LURASIDONE HYDROCHLORIDE
     Indication: BIPOLAR DISORDER
     Dosage: ?          QUANTITY:1 TABLET(S);?
     Route: 048
  8. OXCARBAZEPINE. [Concomitant]
     Active Substance: OXCARBAZEPINE
  9. BUSPIRON [Concomitant]
  10. LEVOTHYROXINE. [Concomitant]
     Active Substance: LEVOTHYROXINE
  11. CHONDROITIN GLUCOSAMINE I-LYSINE [Concomitant]
  12. FISH OIL [Concomitant]
     Active Substance: FISH OIL

REACTIONS (4)
  - Headache [None]
  - Pain [None]
  - Arthralgia [None]
  - Strabismus [None]

NARRATIVE: CASE EVENT DATE: 20191101
